FAERS Safety Report 11433772 (Version 2)
Quarter: 2015Q3

REPORT INFORMATION
  Report Type: Report from Study
  Country: CO (occurrence: CO)
  Receive Date: 20150831
  Receipt Date: 20150911
  Transmission Date: 20151125
  Serious: Yes (Other)
  Sender: FDA-Public Use
  Company Number: PHHY2015CO104129

PATIENT
  Sex: Male
  Weight: 57 kg

DRUGS (2)
  1. GLIVEC [Suspect]
     Active Substance: IMATINIB MESYLATE
     Indication: CHRONIC MYELOID LEUKAEMIA
     Dosage: UNK
     Route: 065
     Dates: start: 2007, end: 201502
  2. GLIVEC [Suspect]
     Active Substance: IMATINIB MESYLATE
     Dosage: 400 MG, MONDAY-FRIDAY (IN THE MORNING)/800 MG DAILY ON SATURDAYS AND SUNDAYS
     Route: 065
     Dates: start: 201502

REACTIONS (3)
  - Appendicitis [Recovered/Resolved]
  - Body height increased [Unknown]
  - Weight increased [Unknown]
